FAERS Safety Report 8988338 (Version 2)
Quarter: 2013Q2

REPORT INFORMATION
  Report Type: Spontaneous
  Country: US (occurrence: None)
  Receive Date: 20121218
  Receipt Date: 20130627
  Transmission Date: 20140414
  Serious: Yes (Other)
  Sender: FDA-Public Use
  Company Number: 2012P1066576

PATIENT
  Age: 50 Year
  Sex: Male

DRUGS (2)
  1. DURAMORPH [Suspect]
     Indication: POST LAMINECTOMY SYNDROME
     Dosage: 9.509 MG;QD;INTH
  2. DURAMORPH [Suspect]
     Indication: PAIN
     Dosage: 9.509 MG;QD;INTH

REACTIONS (3)
  - Therapeutic response decreased [None]
  - Device issue [None]
  - Weight decreased [None]
